FAERS Safety Report 10678200 (Version 1)
Quarter: 2014Q4

REPORT INFORMATION
  Report Type: Other
  Country: IT (occurrence: IT)
  Receive Date: 20141229
  Receipt Date: 20141229
  Transmission Date: 20150529
  Serious: Yes (Life-Threatening)
  Sender: FDA-Public Use
  Company Number: IT-MYLANLABS-2014M1014984

PATIENT

DRUGS (1)
  1. LORAZEPAM. [Suspect]
     Active Substance: LORAZEPAM
     Indication: PRODUCT USED FOR UNKNOWN INDICATION
     Dosage: 50 MG, TOTAL
     Route: 048
     Dates: start: 20141112, end: 20141112

REACTIONS (5)
  - Blood creatine phosphokinase increased [Unknown]
  - Pneumonia aspiration [Unknown]
  - Drug abuse [Unknown]
  - Suicide attempt [Unknown]
  - Amylase increased [Unknown]

NARRATIVE: CASE EVENT DATE: 20141112
